FAERS Safety Report 4844318-7 (Version None)
Quarter: 2005Q4

REPORT INFORMATION
  Report Type: 
  Country: None (occurrence: None)
  Receive Date: 20051202
  Receipt Date: 20051004
  Transmission Date: 20060501
  Serious: Yes (Hospitalization, Other)
  Sender: FDA-Public Use
  Company Number: US-MERCK-0510USA02415

PATIENT
  Age: 49 Year
  Sex: Male
  Weight: 109 kg

DRUGS (2)
  1. VIOXX [Suspect]
     Indication: ARTHRITIS
     Route: 048
     Dates: start: 19991124, end: 20001022
  2. VIOXX [Suspect]
     Indication: INFLAMMATION
     Route: 048
     Dates: start: 19991124, end: 20001022

REACTIONS (7)
  - ARTHRALGIA [None]
  - ARTHROPATHY [None]
  - CARDIAC DISORDER [None]
  - CHEST PAIN [None]
  - DEPRESSION [None]
  - GALLBLADDER DISORDER [None]
  - MYOCARDIAL INFARCTION [None]
